FAERS Safety Report 8205931-2 (Version None)
Quarter: 2012Q1

REPORT INFORMATION
  Report Type: 
  Country: None (occurrence: None)
  Receive Date: 20120313
  Receipt Date: 20120308
  Transmission Date: 20120608
  Serious: Yes (Other)
  Sender: FDA-Public Use
  Company Number: US-AMGEN-USASP2011029761

PATIENT
  Age: 41 Year
  Sex: Male

DRUGS (2)
  1. ENBREL [Suspect]
     Indication: RHEUMATOID ARTHRITIS
     Dosage: 50 MG, QWK
     Dates: start: 20080101
  2. ENBREL [Suspect]
     Dosage: 50 MG, QWK
     Dates: start: 20080101, end: 20110407

REACTIONS (3)
  - SINUSITIS [None]
  - VIITH NERVE PARALYSIS [None]
  - EAR INFECTION [None]
